FAERS Safety Report 7054361-8 (Version None)
Quarter: 2010Q4

REPORT INFORMATION
  Report Type: 
  Country: None (occurrence: None)
  Receive Date: 20101020
  Receipt Date: 20100830
  Transmission Date: 20110411
  Serious: No
  Sender: FDA-Public Use
  Company Number: US-BAYER-201020821BCC

PATIENT
  Age: 92 Year
  Sex: Female
  Weight: 64 kg

DRUGS (4)
  1. ALEVE [Suspect]
     Indication: ARTHRALGIA
     Dosage: UNIT DOSE: 220 MG
     Route: 048
     Dates: start: 20100801
  2. PLAVIX [Concomitant]
     Route: 065
  3. THYROID MEDICATION [Concomitant]
     Route: 065
  4. WATER PILL [Concomitant]
     Route: 065

REACTIONS (1)
  - ARTHRALGIA [None]
